FAERS Safety Report 13794585 (Version 2)
Quarter: 2017Q3

REPORT INFORMATION
  Report Type: Report from Study
  Country: MX (occurrence: MX)
  Receive Date: 20170726
  Receipt Date: 20170727
  Transmission Date: 20171127
  Serious: Yes (Hospitalization, Other)
  Sender: FDA-Public Use
  Company Number: MX-UCBSA-2017028642

PATIENT
  Age: 0 Year
  Sex: Female
  Weight: 6.5 kg

DRUGS (7)
  1. VITAMIN D [Concomitant]
     Active Substance: CHOLECALCIFEROL
     Indication: PRODUCT USED FOR UNKNOWN INDICATION
     Dosage: 10 DROPS, ONCE DAILY (QD)
     Dates: end: 201701
  2. IRON [Concomitant]
     Active Substance: IRON
     Indication: PRODUCT USED FOR UNKNOWN INDICATION
     Dosage: 10 DROPS, ONCE DAILY (QD)
     Dates: end: 201701
  3. LEVETIRACETAM. [Suspect]
     Active Substance: LEVETIRACETAM
     Dosage: 0.5 ML, 2X/DAY (BID)
     Route: 048
  4. VITAMIN C [Concomitant]
     Active Substance: ASCORBIC ACID
     Indication: PRODUCT USED FOR UNKNOWN INDICATION
     Dosage: 10 DROPS, ONCE DAILY (QD)
     Dates: end: 201701
  5. LEVETIRACETAM. [Suspect]
     Active Substance: LEVETIRACETAM
     Indication: SEIZURE
     Dosage: 0.4 ML, 2X/DAY (BID)
     Route: 048
     Dates: start: 2016
  6. LEVETIRACETAM. [Suspect]
     Active Substance: LEVETIRACETAM
     Dosage: 0.6 ML, 2X/DAY (BID)
     Route: 048
  7. PREDNISOLONE ACETATE. [Concomitant]
     Active Substance: PREDNISOLONE ACETATE
     Indication: GLAUCOMA
     Dosage: 1 DROP IN EACH EYE/ 8 HRS

REACTIONS (5)
  - Retinopathy of prematurity [Unknown]
  - Blindness [Unknown]
  - Glaucoma [Unknown]
  - Retinal detachment [Unknown]
  - Off label use [Unknown]

NARRATIVE: CASE EVENT DATE: 2016
